FAERS Safety Report 5617370-9 (Version None)
Quarter: 2008Q1

REPORT INFORMATION
  Report Type: 
  Country: None (occurrence: None)
  Receive Date: 20080207
  Receipt Date: 20070713
  Transmission Date: 20080703
  Serious: No
  Sender: FDA-Public Use
  Company Number: A0664029A

PATIENT
  Sex: Female

DRUGS (1)
  1. PAXIL [Suspect]
     Indication: BIPOLAR DISORDER
     Dosage: 30MG PER DAY
     Route: 048

REACTIONS (2)
  - TREMOR [None]
  - WEIGHT DECREASED [None]
